FAERS Safety Report 5713147-4 (Version None)
Quarter: 2008Q2

REPORT INFORMATION
  Report Type: 
  Country: None (occurrence: None)
  Receive Date: 20080418
  Receipt Date: 20080402
  Transmission Date: 20081010
  Serious: Yes (Other)
  Sender: FDA-Public Use
  Company Number: 2008VX000858

PATIENT
  Age: 45 Year
  Sex: Female
  Weight: 88 kg

DRUGS (9)
  1. CESAMET [Suspect]
  2. DURAGESIC-100 [Concomitant]
  3. ATIVAN [Concomitant]
  4. HYDROXYZINE [Concomitant]
  5. GRAVOL TAB [Concomitant]
  6. EFFEXOR [Concomitant]
  7. METOPROLOL SUCCINATE [Concomitant]
  8. PANTOPRAZOLE SODIUM [Concomitant]
  9. MARIJUANA [Concomitant]

REACTIONS (1)
  - RECTAL HAEMORRHAGE [None]
